FAERS Safety Report 7601847-0 (Version None)
Quarter: 2011Q3

REPORT INFORMATION
  Report Type: 
  Country: None (occurrence: None)
  Receive Date: 20110711
  Receipt Date: 20110706
  Transmission Date: 20111222
  Serious: Yes (Death)
  Sender: FDA-Public Use
  Company Number: JP-PFIZER INC-2011151749

PATIENT
  Age: 76 Year
  Sex: Female

DRUGS (12)
  1. XYLOCAINE [Suspect]
     Dosage: 3 ML 15 MG/DAY
     Route: 030
     Dates: start: 20110705
  2. CEFOPERAZONE SODIUM [Suspect]
     Indication: PYREXIA
     Dosage: 1 G, 1X/DAY
     Route: 030
     Dates: start: 20110624
  3. PRAVASTATIN SODIUM [Concomitant]
     Dosage: 5 MG, 2X/DAY
  4. CARTEOLOL HYDROCHLORIDE [Concomitant]
     Dosage: 5 MG, 2X/DAY
  5. NIFEDIPINE [Concomitant]
     Dosage: 20 MG, 2X/DAY
  6. LEVOFLOXACIN [Concomitant]
     Dosage: 300 MG/DAY
     Route: 048
     Dates: start: 20110624, end: 20110628
  7. CEFOPERAZONE SODIUM [Suspect]
     Indication: COUGH
     Dosage: 1 G, 1X/DAY
     Route: 030
     Dates: start: 20110705
  8. XYLOCAINE [Suspect]
     Indication: PAIN
     Dosage: 3 ML 15 MG/DAY
     Route: 030
     Dates: start: 20110624
  9. URINORM [Concomitant]
     Dosage: 25 MG, 1X/DAY
  10. ALLOPURINOL [Concomitant]
     Dosage: 100 MG, 1X/DAY
  11. SURGAM [Concomitant]
     Dosage: 300 MG/DAY
     Route: 048
     Dates: start: 20110624, end: 20110628
  12. ASVERIN [Concomitant]
     Dosage: 60 MG/DAY
     Route: 048
     Dates: start: 20110624, end: 20110628

REACTIONS (4)
  - RESPIRATORY ARREST [None]
  - SHOCK [None]
  - MALAISE [None]
  - HEART RATE INCREASED [None]
